FAERS Safety Report 10070090 (Version 1)
Quarter: 2014Q2

REPORT INFORMATION
  Report Type: Spontaneous
  Country: US (occurrence: None)
  Receive Date: 20140408
  Receipt Date: 20140408
  Transmission Date: 20141212
  Serious: Yes (Other)
  Sender: FDA-Public Use
  Company Number: AXC-2014-000231

PATIENT
  Age: 69 Year
  Sex: Male
  Weight: 88.4 kg

DRUGS (3)
  1. VIOKACE [Suspect]
     Indication: PANCREATECTOMY
     Dosage: 10440USP, BID, ORAL
     Route: 048
  2. LANTUS (INSULIN GLARGINE) [Concomitant]
  3. NOVOLOG (INSULN ASPART) [Concomitant]

REACTIONS (1)
  - Hypoglycaemia [None]
